FAERS Safety Report 8545733-0 (Version None)
Quarter: 2012Q3

REPORT INFORMATION
  Report Type: 
  Country: None (occurrence: None)
  Receive Date: 20120727
  Receipt Date: 20120717
  Transmission Date: 20120928
  Serious: Yes (Hospitalization)
  Sender: FDA-Public Use
  Company Number: NL-TEVA-349107ISR

PATIENT
  Sex: Female
  Weight: 75 kg

DRUGS (8)
  1. METOPROLOLSUCCINATE A RETARD TABLET MGA 100 MG [Concomitant]
     Dosage: 100 MILLIGRAM;
     Dates: start: 19960101, end: 20120707
  2. ACENOCOUMAROL SANDOZ TABLET 1MG [Concomitant]
     Dates: start: 19960101
  3. ENALAPRIL MALEAAT SANDOZ TABLET 20 [Concomitant]
     Dosage: 20 MILLIGRAM;
     Dates: start: 19960101, end: 20120707
  4. TRAMADOL HCL ACTAVIS CAPSULE 50MG [Concomitant]
     Dosage: 150 MILLIGRAM;
     Dates: start: 20120628, end: 20120707
  5. AMOXICILLIN AND CLAVULANATE POTASSIUM [Suspect]
     Indication: CELLULITIS
     Dosage: 1200 MILLIGRAM;
     Dates: start: 20120604
  6. SIMVASTATIN ACTAVIS TABLET FILMHULD 20MG [Concomitant]
     Dosage: 20 MILLIGRAM;
     Dates: start: 19960101, end: 20120707
  7. CLINDAMYCIN [Suspect]
     Indication: CELLULITIS
     Dosage: 1800 MILLIGRAM;
     Dates: start: 20120628, end: 20120707
  8. PARACETAMOL ACTAVIS ZEPTIL 1000MG [Concomitant]
     Dosage: 4000 MILLIGRAM;
     Dates: start: 20120628, end: 20120707

REACTIONS (4)
  - HEPATITIS CHOLESTATIC [None]
  - DRUG RASH WITH EOSINOPHILIA AND SYSTEMIC SYMPTOMS [None]
  - C-REACTIVE PROTEIN INCREASED [None]
  - EOSINOPHILIA [None]
